FAERS Safety Report 22637803 (Version 1)
Quarter: 2023Q2

REPORT INFORMATION
  Report Type: Spontaneous
  Country: FR (occurrence: FR)
  Receive Date: 20230626
  Receipt Date: 20230626
  Transmission Date: 20230721
  Serious: Yes (Death, Hospitalization)
  Sender: FDA-Public Use
  Company Number: None

PATIENT
  Age: 77 Year
  Sex: Male

DRUGS (2)
  1. REVLIMID [Suspect]
     Active Substance: LENALIDOMIDE
     Indication: High-grade B-cell lymphoma
     Dosage: 25 MG
     Route: 048
     Dates: start: 20230404, end: 20230516
  2. TAFASITAMAB [Suspect]
     Active Substance: TAFASITAMAB
     Indication: High-grade B-cell lymphoma
     Route: 042
     Dates: start: 20230404, end: 20230516

REACTIONS (2)
  - General physical health deterioration [Fatal]
  - Off label use [Unknown]

NARRATIVE: CASE EVENT DATE: 20230509
